FAERS Safety Report 23412964 (Version 1)
Quarter: 2024Q1

REPORT INFORMATION
  Report Type: Spontaneous
  Country: US (occurrence: US)
  Receive Date: 20240117
  Receipt Date: 20240117
  Transmission Date: 20240409
  Serious: Yes (Hospitalization)
  Sender: FDA-Public Use
  Company Number: US-NOVOPROD-1123294

PATIENT
  Age: 75 Year
  Sex: Male
  Weight: 86 kg

DRUGS (14)
  1. OZEMPIC [Suspect]
     Active Substance: SEMAGLUTIDE
     Indication: Type 2 diabetes mellitus
     Dosage: 0.5 MG, QW
     Route: 058
     Dates: start: 20230621, end: 20230927
  2. ROSUVASTATIN [Concomitant]
     Active Substance: ROSUVASTATIN
     Indication: Hyperlipidaemia
     Dosage: 20.0,MG,DAILY
     Route: 048
     Dates: start: 2017
  3. FISH OIL [Concomitant]
     Active Substance: FISH OIL
     Indication: Prophylaxis
     Dosage: 1000.0,MG,4X DAILY
     Route: 048
     Dates: start: 2016
  4. LISINOPRIL [Concomitant]
     Active Substance: LISINOPRIL
     Indication: Microalbuminuria
     Dosage: 5.0,MG,DAILY
     Route: 048
     Dates: start: 2016
  5. METFORMIN [Concomitant]
     Active Substance: METFORMIN HYDROCHLORIDE
     Indication: Type 2 diabetes mellitus
     Dosage: 1000.0,MG,2X DAILY
     Route: 048
     Dates: start: 2010
  6. METOPROLOL [Concomitant]
     Active Substance: METOPROLOL
     Indication: Hypertension
     Dosage: 12.5,MG,2X DAILY
     Route: 048
     Dates: start: 2016
  7. ASPIRIN [Concomitant]
     Active Substance: ASPIRIN
     Indication: Prophylaxis
     Dosage: 81.0,MG,DAILY
     Route: 048
     Dates: start: 20180928
  8. MAGNESIUM CHLORIDE [Concomitant]
     Active Substance: MAGNESIUM CHLORIDE
     Indication: Prophylaxis
     Dosage: 71.5,MG,DAILY
     Route: 048
     Dates: start: 2017
  9. VITAMIN B12 [Concomitant]
     Active Substance: CYANOCOBALAMIN
     Indication: Vitamin B12 decreased
     Dosage: 1000.0,MCG,2X DAILY
     Route: 048
     Dates: start: 2019
  10. EZETIMIBE [Concomitant]
     Active Substance: EZETIMIBE
     Indication: Hyperlipidaemia
     Dosage: 10.0,MG,DAILY
     Route: 048
     Dates: start: 2020
  11. INSULIN DEGLUDEC [Concomitant]
     Active Substance: INSULIN DEGLUDEC
     Dosage: 24.0,IU,DAILY
     Route: 058
     Dates: start: 20230330
  12. COSOPT [Concomitant]
     Active Substance: DORZOLAMIDE HYDROCHLORIDE\TIMOLOL MALEATE
     Indication: Glaucoma
     Dosage: 2.23,%,2 X DAILY
     Route: 001
     Dates: start: 2022
  13. CEFADROXIL [Suspect]
     Active Substance: CEFADROXIL
     Indication: Sunburn
     Dosage: 500.0,MG,4X DAILY
     Dates: start: 20230913, end: 20230921
  14. DOXYCYCLINE [Suspect]
     Active Substance: DOXYCYCLINE
     Indication: Sunburn
     Dosage: 100.0,MG,2X DAILY
     Dates: start: 20230913, end: 20230921

REACTIONS (1)
  - Pancreatitis acute [Recovered/Resolved]

NARRATIVE: CASE EVENT DATE: 20230925
